FAERS Safety Report 10075403 (Version 1)
Quarter: 2014Q1

REPORT INFORMATION
  Report Type: Spontaneous
  Country: US (occurrence: None)
  Receive Date: 20140318
  Receipt Date: 20140318
  Transmission Date: 20141002
  Serious: Yes (Hospitalization)
  Sender: FDA-Public Use
  Company Number: 152825

PATIENT
  Age: 44 Year
  Sex: Male

DRUGS (3)
  1. CISPLATIN [Suspect]
     Indication: CHEMOTHERAPY
     Dosage: ON DAYS 1 AND 15 A 4-WEEK CYCLE
  2. CISPLATIN [Suspect]
     Indication: METASTASES TO PANCREAS
     Dosage: ON DAYS 1 AND 15 A 4-WEEK CYCLE
  3. GEMCITABINE [Concomitant]

REACTIONS (4)
  - Blood pressure increased [None]
  - Pleural effusion [None]
  - Aortic dissection [None]
  - Carotid artery dissection [None]
